FAERS Safety Report 10095529 (Version 2)
Quarter: 2014Q2

REPORT INFORMATION
  Report Type: Spontaneous
  Country: GB (occurrence: GB)
  Receive Date: 20140422
  Receipt Date: 20140520
  Transmission Date: 20141212
  Serious: Yes (Hospitalization)
  Sender: FDA-Public Use
  Company Number: GB-ACTAVIS-2014-07689

PATIENT
  Age: 49 Year
  Sex: Female
  Weight: 74 kg

DRUGS (3)
  1. DOCETAXEL (UNKNOWN) [Suspect]
     Indication: BREAST CANCER METASTATIC
     Dosage: 140 MG, 1/ THREE WEEKS
     Route: 042
     Dates: start: 20140117
  2. PERJETA [Suspect]
     Indication: BREAST CANCER METASTATIC
     Dosage: 420 MG, 1/ THREE WEEKS
     Route: 042
     Dates: start: 20140117
  3. TRASTUZUMAB [Suspect]
     Indication: PRODUCT USED FOR UNKNOWN INDICATION
     Dosage: UNK
     Route: 065

REACTIONS (1)
  - Neutropenic sepsis [Recovered/Resolved]
